FAERS Safety Report 6411241-6 (Version None)
Quarter: 2009Q4

REPORT INFORMATION
  Report Type: 
  Country: None (occurrence: None)
  Receive Date: 20091020
  Receipt Date: 20091013
  Transmission Date: 20100525
  Serious: Yes (Other)
  Sender: FDA-Public Use
  Company Number: 2009AL006619

PATIENT
  Sex: Female

DRUGS (2)
  1. RAMIPRIL [Suspect]
     Indication: HYPERTENSION
     Dosage: 2.5 MG;PO
     Route: 048
     Dates: start: 20090518, end: 20090811
  2. LANSOPRAZOLE [Concomitant]

REACTIONS (2)
  - MOOD SWINGS [None]
  - SUICIDAL IDEATION [None]
